FAERS Safety Report 9407876 (Version 1)
Quarter: 2013Q3

REPORT INFORMATION
  Report Type: Spontaneous
  Country: US (occurrence: None)
  Receive Date: 20130717
  Receipt Date: 20130717
  Transmission Date: 20140515
  Serious: Yes (Life-Threatening)
  Sender: FDA-Public Use
  Company Number: None

PATIENT
  Age: 56 Year
  Sex: Male

DRUGS (1)
  1. LISINOPRIL [Suspect]
     Indication: DIABETES MELLITUS
     Route: 048
     Dates: start: 20071218, end: 20130301

REACTIONS (4)
  - Lip swelling [None]
  - Urticaria [None]
  - Tachycardia [None]
  - Angioedema [None]
